FAERS Safety Report 23727173 (Version 3)
Quarter: 2024Q2

REPORT INFORMATION
  Report Type: Spontaneous
  Country: BR (occurrence: BR)
  Receive Date: 20240410
  Receipt Date: 20240522
  Transmission Date: 20240716
  Serious: No
  Sender: FDA-Public Use
  Company Number: BR-002147023-NVSC2024BR074617

PATIENT
  Sex: Female

DRUGS (1)
  1. VOTRIENT [Suspect]
     Active Substance: PAZOPANIB HYDROCHLORIDE
     Indication: Leiomyosarcoma metastatic
     Dosage: 400 MG (60 TABLETS)
     Route: 065

REACTIONS (8)
  - Skin discolouration [Unknown]
  - Hair colour changes [Unknown]
  - Alopecia [Unknown]
  - Diarrhoea [Unknown]
  - Crying [Not Recovered/Not Resolved]
  - Fatigue [Unknown]
  - Muscle strain [Unknown]
  - Drug ineffective [Unknown]
